FAERS Safety Report 8591521-9 (Version None)
Quarter: 2012Q3

REPORT INFORMATION
  Report Type: 
  Country: None (occurrence: None)
  Receive Date: 20120730
  Receipt Date: 20120725
  Transmission Date: 20120928
  Serious: Yes (Hospitalization)
  Sender: FDA-Public Use
  Company Number: 2012030698

PATIENT
  Age: 21 Year
  Sex: Female

DRUGS (3)
  1. PLATELETS, HUMAN BLOOD(PLATELETS, HUMAN BLOOD) [Concomitant]
  2. PRIVIGEN [Suspect]
     Indication: THROMBOCYTOPENIA
     Dosage: 3 VIALS, 1 VIAL INTRAVENOUS (NOT OTHERWISE SPECIFIED)
     Route: 042
     Dates: start: 20111126, end: 20111127
  3. PRIVIGEN [Suspect]

REACTIONS (6)
  - SEPTIC SHOCK [None]
  - OXYGEN SATURATION DECREASED [None]
  - ALTERED STATE OF CONSCIOUSNESS [None]
  - LEUKOCYTOSIS [None]
  - NEUTROPHIL COUNT INCREASED [None]
  - ESCHERICHIA TEST POSITIVE [None]
